FAERS Safety Report 9524950 (Version 1)
Quarter: 2013Q3

REPORT INFORMATION
  Report Type: Spontaneous
  Country: US (occurrence: None)
  Receive Date: 20130912
  Receipt Date: 20130912
  Transmission Date: 20140515
  Serious: Yes (Other)
  Sender: FDA-Public Use
  Company Number: None

PATIENT
  Age: 87 Year
  Sex: Male
  Weight: 73.94 kg

DRUGS (1)
  1. JAYLN [Suspect]
     Indication: DRUG THERAPY
     Route: 048

REACTIONS (3)
  - Abdominal pain upper [None]
  - Product size issue [None]
  - Dyspepsia [None]
